FAERS Safety Report 9896643 (Version 1)
Quarter: 2014Q1

REPORT INFORMATION
  Report Type: Spontaneous
  Country: US (occurrence: US)
  Receive Date: 20140213
  Receipt Date: 20140213
  Transmission Date: 20141002
  Serious: No
  Sender: FDA-Public Use
  Company Number: US-BRISTOL-MYERS SQUIBB COMPANY-18872176

PATIENT
  Age: 54 Year
  Sex: Female

DRUGS (8)
  1. ABATACEPT SUBQ INJECTION 125MG/ML [Suspect]
     Indication: RHEUMATOID ARTHRITIS
     Dosage: 25APR2013?125 MG PREFILLED SYRINGE
     Route: 058
     Dates: start: 20130109
  2. CELEBREX [Concomitant]
  3. CITALOPRAM [Concomitant]
  4. FOLIC ACID [Concomitant]
  5. METHOTREXATE [Concomitant]
  6. NEXIUM [Concomitant]
  7. PREDNISONE [Concomitant]
  8. PREMPRO [Concomitant]

REACTIONS (1)
  - Drug effect incomplete [Unknown]
